FAERS Safety Report 6405418-3 (Version None)
Quarter: 2009Q4

REPORT INFORMATION
  Report Type: 
  Country: None (occurrence: None)
  Receive Date: 20091016
  Receipt Date: 20091016
  Transmission Date: 20100525
  Serious: Yes (Hospitalization)
  Sender: FDA-Public Use
  Company Number: None

PATIENT
  Age: 71 Year
  Sex: Female
  Weight: 68.0396 kg

DRUGS (1)
  1. RECLAST [Suspect]
     Indication: OSTEOPOROSIS
     Route: 042
     Dates: start: 20090415

REACTIONS (5)
  - BONE PAIN [None]
  - FATIGUE [None]
  - IMPAIRED WORK ABILITY [None]
  - MYALGIA [None]
  - UNEVALUABLE EVENT [None]
